FAERS Safety Report 24724617 (Version 2)
Quarter: 2025Q2

REPORT INFORMATION
  Report Type: Spontaneous
  Country: CA (occurrence: CA)
  Receive Date: 20241212
  Receipt Date: 20250418
  Transmission Date: 20250716
  Serious: Yes (Other)
  Sender: ROCHE
  Company Number: CA-ROCHE-10000153116

PATIENT
  Age: 58 Year
  Sex: Male

DRUGS (5)
  1. SOMATROPIN [Suspect]
     Active Substance: SOMATROPIN
     Indication: Growth hormone deficiency
     Route: 058
  2. AMITRIPTYLINE [Concomitant]
     Active Substance: AMITRIPTYLINE
  3. AVALIDE [Concomitant]
     Active Substance: HYDROCHLOROTHIAZIDE\IRBESARTAN
  4. METOPROLOL [Concomitant]
     Active Substance: METOPROLOL
  5. EPLERENONE [Concomitant]
     Active Substance: EPLERENONE
     Route: 048

REACTIONS (3)
  - Hyperaldosteronism [Unknown]
  - Adrenal disorder [Unknown]
  - Carpal tunnel syndrome [Unknown]
